FAERS Safety Report 8891419 (Version 1)
Quarter: 2012Q4

REPORT INFORMATION
  Report Type: Spontaneous
  Country: US (occurrence: None)
  Receive Date: 20121105
  Receipt Date: 20121105
  Transmission Date: 20130627
  Serious: Yes (Hospitalization)
  Sender: FDA-Public Use
  Company Number: None

PATIENT
  Age: 79 Year
  Sex: Male
  Weight: 80.7 kg

DRUGS (4)
  1. HYDRALAZINE [Suspect]
     Indication: CONGESTIVE HEART FAILURE
     Route: 048
     Dates: start: 20120710, end: 20120911
  2. HYDRALAZINE [Suspect]
     Indication: HYPERTENSION
     Route: 048
     Dates: start: 20120710, end: 20120911
  3. ISOSORBIDE MONONITRATE [Suspect]
     Indication: CONGESTIVE HEART FAILURE
     Dosage: 30 MG AM PO
     Route: 048
     Dates: start: 20120710, end: 20120911
  4. ISOSORBIDE MONONITRATE [Suspect]
     Indication: HYPERTENSION
     Dosage: 30 MG AM PO
     Route: 048
     Dates: start: 20120710, end: 20120911

REACTIONS (1)
  - Angioedema [None]
